FAERS Safety Report 8428334 (Version 2)
Quarter: 2012Q4

REPORT INFORMATION
  Report Type: 
  Country: US (occurrence: US)
  Receive Date: 20120227
  Receipt Date: 20121221
  Transmission Date: 20130627
  Serious: Yes (Hospitalization)
  Sender: FDA-Public Use
  Company Number: US-ACTELION-A-US2012-61352

PATIENT
  Age: 78 Year
  Sex: Female

DRUGS (1)
  1. TRACLEER [Suspect]
     Indication: PULMONARY ARTERIAL HYPERTENSION
     Dosage: UNK
     Route: 048
     Dates: start: 20091210

REACTIONS (5)
  - Gastric neoplasm [Unknown]
  - Asthenia [Unknown]
  - Weight decreased [Unknown]
  - Lymphadenopathy [Unknown]
  - Weight decreased [Unknown]
